FAERS Safety Report 6702005-4 (Version None)
Quarter: 2010Q2

REPORT INFORMATION
  Report Type: 
  Country: None (occurrence: None)
  Receive Date: 20100429
  Receipt Date: 20100421
  Transmission Date: 20101027
  Serious: Yes (Other)
  Sender: FDA-Public Use
  Company Number: FR-ROCHE-698833

PATIENT
  Age: 25 Year
  Sex: Female
  Weight: 51 kg

DRUGS (1)
  1. MIRCERA [Suspect]
     Route: 042
     Dates: start: 20100420

REACTIONS (1)
  - ANAPHYLACTOID REACTION [None]
